FAERS Safety Report 6553901-2 (Version None)
Quarter: 2010Q1

REPORT INFORMATION
  Report Type: 
  Country: None (occurrence: None)
  Receive Date: 20100127
  Receipt Date: 20100119
  Transmission Date: 20100710
  Serious: Yes (Hospitalization)
  Sender: FDA-Public Use
  Company Number: GB-TEVA-221486ISR

PATIENT
  Age: 39 Year
  Sex: Male
  Weight: 76.6 kg

DRUGS (8)
  1. DIAZEPAM [Suspect]
     Indication: DEPENDENCE
     Route: 048
     Dates: start: 20030812
  2. DICLOFENAC SODIUM [Suspect]
     Route: 048
     Dates: start: 20030812
  3. MORPHINE [Suspect]
     Dates: start: 20030812
  4. TADALAFIL [Suspect]
     Indication: ERECTILE DYSFUNCTION
     Route: 048
     Dates: start: 20050127
  5. CO-TRIMOXAZOLE [Suspect]
     Indication: HIV TEST POSITIVE
     Dates: start: 20040303
  6. VENLAFAXINE [Suspect]
     Route: 048
     Dates: start: 20030812
  7. PHENOXYMETHYLPENICILLIN [Suspect]
     Indication: SPLENECTOMY
     Dates: start: 20031111
  8. BUPROPION HYDROCHLORIDE [Suspect]
     Indication: EX-TOBACCO USER
     Route: 048
     Dates: start: 20050127

REACTIONS (1)
  - ACUTE MYOCARDIAL INFARCTION [None]
